FAERS Safety Report 23695899 (Version 1)
Quarter: 2024Q2

REPORT INFORMATION
  Report Type: Spontaneous
  Country: CN (occurrence: CN)
  Receive Date: 20240402
  Receipt Date: 20240402
  Transmission Date: 20240716
  Serious: Yes (Hospitalization, Other)
  Sender: FDA-Public Use
  Company Number: None

PATIENT
  Age: 26 Year
  Sex: Male
  Weight: 70 kg

DRUGS (6)
  1. IFOSFAMIDE [Suspect]
     Active Substance: IFOSFAMIDE
     Indication: Chondrosarcoma
     Dosage: 3.2 G, QD, DILUTED WITH 500 ML OF SODIUM CHLORIDE (1.8G/M2), D1-5
     Route: 041
     Dates: start: 20240307, end: 20240311
  2. SODIUM CHLORIDE [Suspect]
     Active Substance: SODIUM CHLORIDE
     Indication: Medication dilution
     Dosage: 500 ML, QD, (1.8G/M2), D1-5, USED TO DILUTE 3.2 G OF IFOSFAMIDE
     Route: 041
     Dates: start: 20240307, end: 20240311
  3. SODIUM CHLORIDE [Suspect]
     Active Substance: SODIUM CHLORIDE
     Dosage: 500 ML, QD, D1-5, USED TO DILUTE 100 MG OF ETOPOSIDE
     Route: 041
     Dates: start: 20240307, end: 20240311
  4. SODIUM CHLORIDE [Suspect]
     Active Substance: SODIUM CHLORIDE
     Dosage: 300 ML, QD, (100MG/M2), D1-5, USED TO DILUTE 75 MG OF ETOPOSIDE
     Route: 041
     Dates: start: 20240307, end: 20240311
  5. ETOPOSIDE [Suspect]
     Active Substance: ETOPOSIDE
     Indication: Chondrosarcoma
     Dosage: 75 MG, QD, DILUTED WITH 300 ML OF SODIUM CHLORIDE, (100MG/M2) D1-5
     Route: 041
     Dates: start: 20240307, end: 20240311
  6. ETOPOSIDE [Suspect]
     Active Substance: ETOPOSIDE
     Dosage: 100 MG, QD, DILUTED WITH 500 ML OF SODIUM CHLORIDE, D1-5
     Route: 041
     Dates: start: 20240307, end: 20240311

REACTIONS (1)
  - Myelosuppression [Recovering/Resolving]

NARRATIVE: CASE EVENT DATE: 20240319
